FAERS Safety Report 6529983-0 (Version None)
Quarter: 2010Q1

REPORT INFORMATION
  Report Type: 
  Country: None (occurrence: None)
  Receive Date: 20100107
  Receipt Date: 20091230
  Transmission Date: 20100710
  Serious: Yes (Other)
  Sender: FDA-Public Use
  Company Number: US-PFIZER INC-2009308603

PATIENT
  Sex: Female

DRUGS (2)
  1. DETROL LA [Suspect]
     Indication: MICTURITION URGENCY
     Dosage: UNK
  2. DETROL LA [Suspect]
     Indication: POLLAKIURIA

REACTIONS (4)
  - BLADDER OBSTRUCTION [None]
  - POLLAKIURIA [None]
  - SURGERY [None]
  - URINARY RETENTION [None]
